FAERS Safety Report 8277965-3 (Version None)
Quarter: 2012Q2

REPORT INFORMATION
  Report Type: 
  Country: None (occurrence: None)
  Receive Date: 20120412
  Receipt Date: 20120409
  Transmission Date: 20120825
  Serious: Yes (Death)
  Sender: FDA-Public Use
  Company Number: ES-JNJFOC-20120304124

PATIENT
  Sex: Female
  Weight: 53 kg

DRUGS (7)
  1. DURAGESIC-100 [Suspect]
     Route: 062
     Dates: start: 20120215, end: 20120224
  2. DURAGESIC-100 [Suspect]
     Route: 062
     Dates: start: 20120225, end: 20120228
  3. FERROGRADUMET [Concomitant]
     Indication: ANAEMIA
     Route: 065
     Dates: end: 20120229
  4. VENLAFAXINE [Concomitant]
     Indication: DEPRESSION
     Route: 065
     Dates: end: 20120229
  5. INSULIN [Concomitant]
     Indication: DIABETES MELLITUS
     Route: 065
     Dates: end: 20120229
  6. DURAGESIC-100 [Suspect]
     Indication: CANCER PAIN
     Route: 062
     Dates: start: 20120228
  7. DURAGESIC-100 [Suspect]
     Route: 062
     Dates: end: 20120211

REACTIONS (4)
  - DRUG DISPENSING ERROR [None]
  - DISEASE PROGRESSION [None]
  - DRUG INEFFECTIVE [None]
  - EXPIRED DRUG ADMINISTERED [None]
